FAERS Safety Report 8363284-3 (Version None)
Quarter: 2012Q2

REPORT INFORMATION
  Report Type: 
  Country: None (occurrence: None)
  Receive Date: 20120516
  Receipt Date: 20110930
  Transmission Date: 20120825
  Serious: No
  Sender: FDA-Public Use
  Company Number: US-GLAXOSMITHKLINE-A0946604A

PATIENT
  Age: 63 Year
  Sex: Female

DRUGS (1)
  1. BACTROBAN [Suspect]
     Indication: BLISTER
     Dosage: 1APP TWICE PER DAY
     Route: 061
     Dates: start: 20110927, end: 20110929

REACTIONS (2)
  - CONDITION AGGRAVATED [None]
  - BLISTER [None]
